FAERS Safety Report 22602737 (Version 1)
Quarter: 2023Q2

REPORT INFORMATION
  Report Type: Report from Study
  Country: US (occurrence: US)
  Receive Date: 20230615
  Receipt Date: 20230615
  Transmission Date: 20230721
  Serious: Yes (Death, Hospitalization)
  Sender: FDA-Public Use
  Company Number: US-Endocyte-US-ENDO01-19-00142

PATIENT
  Age: 60 Year
  Sex: Male
  Weight: 67 kg

DRUGS (12)
  1. PLUVICTO [Suspect]
     Active Substance: LUTETIUM LU-177 VIPIVOTIDE TETRAXETAN
     Indication: Hormone-refractory prostate cancer
     Dosage: 7.54 GBQ, EVERY 6 WEEK
     Route: 042
     Dates: start: 20190614, end: 20190614
  2. LOCAMETZ [Suspect]
     Active Substance: PSMA-HBED-CC
     Indication: Positron emission tomogram
     Dosage: 4.7 MCI
     Route: 042
     Dates: start: 20190517, end: 20190517
  3. ENZALUTAMIDE [Suspect]
     Active Substance: ENZALUTAMIDE
     Indication: Hormone-refractory prostate cancer
     Dosage: 160 MG, QD
     Route: 048
     Dates: start: 20190523, end: 20190816
  4. LEUPROLIDE [Suspect]
     Active Substance: LEUPROLIDE
     Indication: Hormone-refractory prostate cancer
     Dosage: 22.5 MG, Q3MO
     Route: 030
     Dates: start: 20170914, end: 20190710
  5. XGEVA [Suspect]
     Active Substance: DENOSUMAB
     Indication: Hormone-refractory prostate cancer
     Dosage: 120 MG, QMO
     Route: 058
     Dates: start: 20180705, end: 20190710
  6. DEXAMETHASONE [Suspect]
     Active Substance: DEXAMETHASONE
     Indication: Hormone-refractory prostate cancer
     Dosage: 0.5 MG, QD
     Route: 048
     Dates: start: 20190409, end: 20190816
  7. CYANOCOBALAMIN [Concomitant]
     Active Substance: CYANOCOBALAMIN
     Indication: Anaemia
     Dosage: 500 UG
     Route: 048
     Dates: start: 20181009, end: 20190820
  8. ACETAMINOPHEN\HYDROCODONE [Concomitant]
     Active Substance: ACETAMINOPHEN\HYDROCODONE
     Indication: Pain
     Dosage: 325 MG
     Route: 048
     Dates: start: 20190514
  9. NICOTINE POLACRILEX [Concomitant]
     Active Substance: NICOTINE
     Indication: Smoking cessation therapy
     Dosage: 4 MG
     Route: 048
     Dates: start: 20180308
  10. TAMSULOSIN [Concomitant]
     Active Substance: TAMSULOSIN
     Indication: Prostatomegaly
     Dosage: 0.8 MG
     Route: 048
     Dates: start: 20190103
  11. MORPHINE [Concomitant]
     Active Substance: MORPHINE
     Indication: Pain
     Dosage: 15 MG
     Route: 048
     Dates: start: 20190613
  12. ALLOPURINOL [Concomitant]
     Active Substance: ALLOPURINOL
     Indication: Blood uric acid
     Dosage: 100 MG
     Route: 048
     Dates: start: 20190702, end: 20190829

REACTIONS (2)
  - Pancytopenia [Fatal]
  - Haemorrhage intracranial [Not Recovered/Not Resolved]

NARRATIVE: CASE EVENT DATE: 20190702
